FAERS Safety Report 24439949 (Version 1)
Quarter: 2024Q4

REPORT INFORMATION
  Report Type: Report from Study
  Country: US (occurrence: US)
  Receive Date: 20241015
  Receipt Date: 20241015
  Transmission Date: 20250115
  Serious: Yes (Hospitalization, Other)
  Sender: ABBVIE
  Company Number: US-ABBVIE-5961161

PATIENT
  Age: 57 Year
  Sex: Female

DRUGS (1)
  1. RINVOQ [Suspect]
     Active Substance: UPADACITINIB
     Indication: Crohn^s disease
     Route: 048

REACTIONS (7)
  - Small intestinal obstruction [Not Recovered/Not Resolved]
  - Gastric dilatation [Unknown]
  - Faeces discoloured [Unknown]
  - Malaise [Unknown]
  - Abdominal pain [Unknown]
  - Mucous stools [Unknown]
  - Vomiting [Unknown]

NARRATIVE: CASE EVENT DATE: 20241001
